FAERS Safety Report 10653955 (Version 1)
Quarter: 2014Q4

REPORT INFORMATION
  Report Type: Spontaneous
  Country: US (occurrence: None)
  Receive Date: 20141212
  Receipt Date: 20141212
  Transmission Date: 20150529
  Serious: Yes (Hospitalization)
  Sender: FDA-Public Use
  Company Number: 2014-US-015946

PATIENT
  Age: 54 Year
  Sex: Female
  Weight: 88 kg

DRUGS (5)
  1. DEPAKOTE(VALPROATE SEMISODIUM) [Concomitant]
  2. WELLBUTRIN(BUPROPION HYDROCHLORIDE [Concomitant]
  3. TEMAZEPAM(TEMAZEPAM) [Concomitant]
  4. CELEXA(CITALOPRAM HYDROCROMIDE) [Concomitant]
  5. XYREM [Suspect]
     Active Substance: SODIUM OXYBATE
     Indication: SLEEP DISORDER
     Route: 048
     Dates: start: 201311, end: 2013

REACTIONS (3)
  - Hip fracture [None]
  - Fall [None]
  - Off label use [None]

NARRATIVE: CASE EVENT DATE: 20141202
